FAERS Safety Report 9887766 (Version 2)
Quarter: 2014Q1

REPORT INFORMATION
  Report Type: Spontaneous
  Country: US (occurrence: US)
  Receive Date: 20140211
  Receipt Date: 20140211
  Transmission Date: 20141002
  Serious: Yes (Death)
  Sender: FDA-Public Use
  Company Number: US-JNJCP-30000199233

PATIENT
  Age: 47 Year
  Sex: Female

DRUGS (2)
  1. JOHNSON^S BABY PRODUCTS [Suspect]
     Route: 061
  2. SHOWER TO SHOWER [Suspect]
     Indication: PRODUCT USED FOR UNKNOWN INDICATION
     Route: 061

REACTIONS (1)
  - Ovarian cancer [Fatal]
